FAERS Safety Report 24646316 (Version 2)
Quarter: 2025Q1

REPORT INFORMATION
  Report Type: Spontaneous
  Country: AT (occurrence: AT)
  Receive Date: 20241121
  Receipt Date: 20250331
  Transmission Date: 20250408
  Serious: Yes (Other)
  Sender: ROCHE
  Company Number: AT-ROCHE-10000135995

PATIENT
  Age: 41 Year
  Sex: Female

DRUGS (11)
  1. ROZLYTREK [Suspect]
     Active Substance: ENTRECTINIB
     Indication: Non-small cell lung cancer
     Route: 065
     Dates: start: 202303, end: 202306
  2. ROZLYTREK [Suspect]
     Active Substance: ENTRECTINIB
     Route: 065
  3. DOCETAXEL [Concomitant]
     Active Substance: DOCETAXEL
     Dates: start: 202310, end: 202401
  4. CRIZOTINIB [Concomitant]
     Active Substance: CRIZOTINIB
     Dates: start: 202005, end: 202101
  5. LORLATINIB [Concomitant]
     Active Substance: LORLATINIB
     Dates: start: 202101, end: 202112
  6. LORLATINIB [Concomitant]
     Active Substance: LORLATINIB
     Dates: start: 202309, end: 202310
  7. REPOTRECTINIB [Concomitant]
     Active Substance: REPOTRECTINIB
     Dates: start: 202306, end: 202309
  8. CARBOPLATIN [Concomitant]
     Active Substance: CARBOPLATIN
     Dates: start: 202404, end: 202408
  9. CARBOPLATIN [Concomitant]
     Active Substance: CARBOPLATIN
     Dates: start: 202201, end: 202204
  10. PEMBROLIZUMAB [Concomitant]
     Active Substance: PEMBROLIZUMAB
     Dates: start: 202201, end: 202204
  11. PEMBROLIZUMAB [Concomitant]
     Active Substance: PEMBROLIZUMAB
     Dates: start: 202404, end: 202408

REACTIONS (2)
  - Dysgeusia [Unknown]
  - Disease progression [Unknown]
